FAERS Safety Report 9644037 (Version 1)
Quarter: 2013Q4

REPORT INFORMATION
  Report Type: Spontaneous
  Country: GB (occurrence: GB)
  Receive Date: 20131024
  Receipt Date: 20131024
  Transmission Date: 20140711
  Serious: Yes (Hospitalization)
  Sender: FDA-Public Use
  Company Number: PHHY2013GB116177

PATIENT
  Age: 4 Year
  Sex: Female

DRUGS (1)
  1. PHENOXYMETHYLPENICILLIN [Suspect]
     Indication: INFECTION
     Dosage: 125 MG, UNK (125MG/5ML - 5ML FOUR TIMES DAILY)
     Route: 048
     Dates: start: 20130722, end: 20130731

REACTIONS (2)
  - Drug dispensing error [Recovering/Resolving]
  - Drug ineffective [Recovering/Resolving]
